FAERS Safety Report 22041605 (Version 1)
Quarter: 2023Q1

REPORT INFORMATION
  Report Type: Spontaneous
  Country: JP (occurrence: JP)
  Receive Date: 20230227
  Receipt Date: 20230227
  Transmission Date: 20230418
  Serious: Yes (Hospitalization)
  Sender: FDA-Public Use
  Company Number: JP-DSJP-DSJ-2023-107262

PATIENT
  Age: 34 Year
  Sex: Male
  Weight: 58 kg

DRUGS (1)
  1. OLMESARTAN MEDOXOMIL [Suspect]
     Active Substance: OLMESARTAN MEDOXOMIL
     Indication: Blood pressure increased
     Dosage: UNK
     Route: 065

REACTIONS (3)
  - IgA nephropathy [Recovering/Resolving]
  - Renal artery stenosis [Recovering/Resolving]
  - Takayasu^s arteritis [Recovering/Resolving]
